FAERS Safety Report 12554608 (Version 1)
Quarter: 2016Q3

REPORT INFORMATION
  Report Type: Spontaneous
  Country: GB (occurrence: GB)
  Receive Date: 20160713
  Receipt Date: 20160713
  Transmission Date: 20161109
  Serious: Yes (Other)
  Sender: FDA-Public Use
  Company Number: GB-SAOL THERAPEUTICS-2016SAO00126

PATIENT

DRUGS (1)
  1. LIORESAL [Suspect]
     Active Substance: BACLOFEN
     Dosage: UNK
     Route: 037

REACTIONS (4)
  - Drug withdrawal syndrome [Not Recovered/Not Resolved]
  - Cerebrospinal fluid leakage [Not Recovered/Not Resolved]
  - Implant site extravasation [Not Recovered/Not Resolved]
  - Infusion site calcification [Not Recovered/Not Resolved]

NARRATIVE: CASE EVENT DATE: 201603
